FAERS Safety Report 7904731-8 (Version None)
Quarter: 2011Q4

REPORT INFORMATION
  Report Type: 
  Country: None (occurrence: None)
  Receive Date: 20111109
  Receipt Date: 20111103
  Transmission Date: 20120403
  Serious: Yes (Death, Hospitalization, Other)
  Sender: FDA-Public Use
  Company Number: DE-ELI_LILLY_AND_COMPANY-DE201110008099

PATIENT
  Age: 79 Year
  Sex: Female

DRUGS (10)
  1. HUMULIN N [Suspect]
     Dosage: 6 U, BID
     Route: 058
     Dates: end: 20110817
  2. BISOPROLOL [Concomitant]
     Dosage: 2.5 MG, UNKNOWN
  3. HUMALOG [Suspect]
     Dosage: 6 U, BID
  4. HUMULIN N [Suspect]
     Dosage: 10 U, BID
     Route: 058
     Dates: start: 20110901
  5. ENALAPRIL MALEATE [Concomitant]
     Dosage: 5 MG, BID
  6. BELOC [Concomitant]
  7. LEVOTHYROXINE SODIUM [Concomitant]
     Dosage: 50 MG, UNKNOWN
  8. HUMULIN R [Suspect]
     Dosage: UNK UNK, TID
     Route: 058
     Dates: start: 20110817, end: 20110901
  9. ASPIRIN [Concomitant]
     Dosage: 100 MG, UNKNOWN
  10. SIMVASTATIN [Concomitant]
     Dosage: UNK

REACTIONS (9)
  - DRUG NAME CONFUSION [None]
  - CEREBROVASCULAR ACCIDENT [None]
  - HEMIPARESIS [None]
  - BLOOD GLUCOSE INCREASED [None]
  - POLYNEUROPATHY [None]
  - GANGRENE [None]
  - VEIN DISORDER [None]
  - WRONG DRUG ADMINISTERED [None]
  - PNEUMONIA [None]
